FAERS Safety Report 12307111 (Version 1)
Quarter: 2016Q2

REPORT INFORMATION
  Report Type: Spontaneous
  Country: US (occurrence: US)
  Receive Date: 20160426
  Receipt Date: 20160426
  Transmission Date: 20160815
  Serious: No
  Sender: FDA-Public Use
  Company Number: US-ALKERMES INC.-ALK-2016-000042

PATIENT

DRUGS (4)
  1. CLONIDINE. [Concomitant]
     Active Substance: CLONIDINE
     Indication: HYPERTENSION
     Dosage: UNK
  2. VIVITROL [Suspect]
     Active Substance: NALTREXONE
     Indication: DRUG DEPENDENCE
  3. WELLBUTRIN [Concomitant]
     Active Substance: BUPROPION HYDROCHLORIDE
     Indication: DEPRESSION
     Dosage: UNK
  4. VIVITROL [Suspect]
     Active Substance: NALTREXONE
     Indication: ALCOHOLISM
     Dosage: 380 MG, QMO
     Route: 030
     Dates: start: 201511

REACTIONS (7)
  - Alcohol use [Unknown]
  - Surgery [Unknown]
  - Euphoric mood [Unknown]
  - Drug screen positive [Recovered/Resolved]
  - Drug abuse [Not Recovered/Not Resolved]
  - Drug dependence [Unknown]
  - Dependence [Recovered/Resolved]

NARRATIVE: CASE EVENT DATE: 2015
